FAERS Safety Report 4982754-9 (Version None)
Quarter: 2006Q2

REPORT INFORMATION
  Report Type: 
  Country: None (occurrence: None)
  Receive Date: 20060425
  Receipt Date: 20050928
  Transmission Date: 20061013
  Serious: Yes (Hospitalization)
  Sender: FDA-Public Use
  Company Number: US-MERCK-0509USA04505

PATIENT
  Age: 73 Year
  Sex: Male

DRUGS (11)
  1. VIOXX [Suspect]
     Indication: OSTEOARTHRITIS
     Route: 048
     Dates: start: 20010413, end: 20010401
  2. VIOXX [Suspect]
     Route: 048
     Dates: start: 20010401, end: 20020219
  3. VIOXX [Suspect]
     Route: 048
     Dates: end: 20040101
  4. VIOXX [Suspect]
     Indication: BURSITIS
     Route: 048
     Dates: start: 20010413, end: 20010401
  5. VIOXX [Suspect]
     Route: 048
     Dates: start: 20010401, end: 20020219
  6. VIOXX [Suspect]
     Route: 048
     Dates: end: 20040101
  7. MEDROL [Concomitant]
     Route: 065
  8. ZYRTEC [Concomitant]
     Route: 065
  9. ASPIRIN [Concomitant]
     Route: 065
  10. LISINOPRIL [Concomitant]
     Route: 065
  11. ZOCOR [Concomitant]
     Route: 048

REACTIONS (7)
  - ANAEMIA [None]
  - CEREBROVASCULAR ACCIDENT [None]
  - ECCHYMOSIS [None]
  - FALL [None]
  - LIMB DEFORMITY [None]
  - TENDON RUPTURE [None]
  - TRANSIENT ISCHAEMIC ATTACK [None]
